FAERS Safety Report 6509755-3 (Version None)
Quarter: 2009Q4

REPORT INFORMATION
  Report Type: 
  Country: None (occurrence: None)
  Receive Date: 20091222
  Receipt Date: 20091216
  Transmission Date: 20100525
  Serious: Yes (Hospitalization)
  Sender: FDA-Public Use
  Company Number: JP-BAYER-200913615BYL

PATIENT
  Age: 77 Year
  Sex: Male
  Weight: 69 kg

DRUGS (11)
  1. NEXAVAR [Suspect]
     Indication: HEPATIC NEOPLASM MALIGNANT
     Dosage: TOTAL DAILY DOSE: 800 MG  UNIT DOSE: 200 MG
     Route: 048
     Dates: start: 20090910, end: 20090928
  2. NEXAVAR [Suspect]
     Dosage: UNIT DOSE: 200 MG
     Route: 048
     Dates: start: 20091021, end: 20091027
  3. NEXAVAR [Suspect]
     Dosage: UNIT DOSE: 200 MG
     Route: 048
     Dates: start: 20091028, end: 20091108
  4. NEXAVAR [Suspect]
     Dosage: UNIT DOSE: 200 MG
     Route: 048
     Dates: start: 20091007, end: 20091013
  5. AZELASTINE HCL [Concomitant]
     Dosage: UNIT DOSE: 1 MG
     Route: 048
     Dates: start: 20090916
  6. URSO 250 [Concomitant]
     Indication: BILE OUTPUT DECREASED
     Dosage: UNIT DOSE: 100 MG
     Route: 048
     Dates: start: 20090916
  7. CONIEL [Concomitant]
     Indication: HYPERTENSION
     Dosage: UNIT DOSE: 4 MG
     Route: 048
     Dates: start: 20090916
  8. TAKEPRON [Concomitant]
     Dosage: UNIT DOSE: 15 MG
     Route: 048
     Dates: start: 20090916
  9. PANCREATIN [Concomitant]
     Dosage: UNIT DOSE: 3 G
     Route: 048
     Dates: start: 20090916
  10. FOIPAN [Concomitant]
     Indication: RASH
     Dosage: UNIT DOSE: 100 MG
     Route: 048
     Dates: start: 20090916, end: 20090929
  11. MUCOSTA [Concomitant]
     Dosage: UNIT DOSE: 100 MG
     Route: 048
     Dates: start: 20090916

REACTIONS (4)
  - DYSPNOEA [None]
  - INTERSTITIAL LUNG DISEASE [None]
  - MALAISE [None]
  - RASH [None]
